FAERS Safety Report 14933028 (Version 2)
Quarter: 2018Q2

REPORT INFORMATION
  Report Type: Spontaneous
  Country: US (occurrence: US)
  Receive Date: 20180524
  Receipt Date: 20180607
  Transmission Date: 20180711
  Serious: No
  Sender: FDA-Public Use
  Company Number: US-PFIZER INC-2018213355

PATIENT
  Age: 76 Year
  Sex: Female

DRUGS (2)
  1. LYRICA [Suspect]
     Active Substance: PREGABALIN
     Dosage: 300 MG, 3X/DAY (TAKE 1 CAP IN AM, 1 CAP IN THE AFTERNOON AND 1 CAP AT HS)
  2. LYRICA [Suspect]
     Active Substance: PREGABALIN
     Indication: PAIN
     Dosage: UNK

REACTIONS (8)
  - Peripheral swelling [Unknown]
  - Gastric disorder [Unknown]
  - Drug ineffective [Unknown]
  - Hypoaesthesia [Unknown]
  - Musculoskeletal stiffness [Unknown]
  - Prescribed overdose [Unknown]
  - Joint swelling [Unknown]
  - Poor quality sleep [Unknown]
